FAERS Safety Report 14348746 (Version 1)
Quarter: 2018Q1

REPORT INFORMATION
  Report Type: Spontaneous
  Country: US (occurrence: US)
  Receive Date: 20180104
  Receipt Date: 20180104
  Transmission Date: 20180509
  Serious: Yes (Other)
  Sender: FDA-Public Use
  Company Number: US-RICON PHARMA, LLC-RIC201712-000769

PATIENT
  Age: 22 Year
  Sex: Male

DRUGS (4)
  1. LIDOCAINE. [Suspect]
     Active Substance: LIDOCAINE
     Indication: LOCAL ANAESTHESIA
  2. LIDOCAINE. [Suspect]
     Active Substance: LIDOCAINE
     Indication: VENTRICULAR TACHYCARDIA
     Route: 042
  3. ROPIVACAINE [Concomitant]
     Active Substance: ROPIVACAINE
  4. ROPIVACAINE [Concomitant]
     Active Substance: ROPIVACAINE
     Indication: LOCAL ANAESTHESIA

REACTIONS (2)
  - Condition aggravated [Recovered/Resolved]
  - Cardiac arrest [Recovered/Resolved]
